FAERS Safety Report 20459891 (Version 2)
Quarter: 2022Q1

REPORT INFORMATION
  Report Type: Other
  Country: US (occurrence: None)
  Receive Date: 20220211
  Receipt Date: 20220317
  Transmission Date: 20220423
  Serious: No
  Sender: FDA-Public Use
  Company Number: US-ROCHE-3017982

PATIENT
  Sex: Female
  Weight: 95.340 kg

DRUGS (3)
  1. OCREVUS [Suspect]
     Active Substance: OCRELIZUMAB
     Indication: Relapsing multiple sclerosis
     Dosage: YES, 300 MG ON DAY 1 AND REPEAT ON DAY 15 THAN 600 MG EVERY 6 MONTHS
     Route: 042
     Dates: start: 20200521
  2. OCREVUS [Suspect]
     Active Substance: OCRELIZUMAB
     Dosage: 600 MG EVERY 6 MONTHS
     Route: 042
  3. PFIZER-BIONTECH COVID-19 VACCINE [Concomitant]
     Active Substance: TOZINAMERAN

REACTIONS (2)
  - COVID-19 [Not Recovered/Not Resolved]
  - B-lymphocyte count increased [Unknown]

NARRATIVE: CASE EVENT DATE: 20210101
